FAERS Safety Report 25831909 (Version 2)
Quarter: 2025Q3

REPORT INFORMATION
  Report Type: Spontaneous
  Country: US (occurrence: US)
  Receive Date: 20250922
  Receipt Date: 20250925
  Transmission Date: 20251020
  Serious: Yes (Hospitalization, Other)
  Sender: PFIZER
  Company Number: US-MLMSERVICE-20250910-PI638256-00218-2

PATIENT
  Age: 14 Year
  Sex: Male

DRUGS (3)
  1. METHOTREXATE SODIUM [Suspect]
     Active Substance: METHOTREXATE SODIUM
     Indication: T-cell type acute leukaemia
     Route: 048
     Dates: start: 2023, end: 2023
  2. MERCAPTOPURINE [Suspect]
     Active Substance: MERCAPTOPURINE
     Indication: T-cell type acute leukaemia
     Route: 048
     Dates: start: 2023, end: 2023
  3. INSULIN NOS [Concomitant]
     Active Substance: INSULIN NOS
     Indication: Steroid diabetes
     Dates: start: 2022

REACTIONS (6)
  - Sepsis [Unknown]
  - Psoas abscess [Unknown]
  - Myelosuppression [Unknown]
  - Atrioventricular block first degree [Unknown]
  - Small intestinal obstruction [Unknown]
  - Wernicke^s encephalopathy [Unknown]

NARRATIVE: CASE EVENT DATE: 20230101
